FAERS Safety Report 4517701-7 (Version None)
Quarter: 2004Q4

REPORT INFORMATION
  Report Type: 
  Country: None (occurrence: None)
  Receive Date: 20041203
  Receipt Date: 20041123
  Transmission Date: 20050328
  Serious: Yes (Hospitalization)
  Sender: FDA-Public Use
  Company Number: US-BRISTOL-MYERS SQUIBB COMPANY-12773743

PATIENT
  Age: 63 Year
  Sex: Male
  Weight: 59 kg

DRUGS (6)
  1. PRAVACHOL [Suspect]
     Indication: BLOOD CHOLESTEROL INCREASED
     Route: 048
     Dates: start: 19920101
  2. NIASPAN [Concomitant]
  3. ZETIA [Concomitant]
  4. ATENOLOL [Concomitant]
  5. ALTACE [Concomitant]
  6. ASPIRIN [Concomitant]

REACTIONS (2)
  - HEPATIC ENZYME INCREASED [None]
  - TRIPLE VESSEL BYPASS GRAFT [None]
